FAERS Safety Report 10021367 (Version 1)
Quarter: 2014Q1

REPORT INFORMATION
  Report Type: Spontaneous
  Country: US (occurrence: None)
  Receive Date: 20140318
  Receipt Date: 20140318
  Transmission Date: 20141002
  Serious: Yes (Other)
  Sender: FDA-Public Use
  Company Number: None

PATIENT
  Age: 23 Year
  Sex: 0
  Weight: 45.4 kg

DRUGS (2)
  1. ZENPEP [Suspect]
     Indication: PANCREATIC INSUFFICIENCY
     Dosage: 5 CAP WITH MEALS
     Route: 048
  2. ZENPEP [Suspect]
     Indication: CYSTIC FIBROSIS
     Dosage: 5 CAP WITH MEALS
     Route: 048

REACTIONS (2)
  - Product substitution issue [None]
  - Product compounding quality issue [None]
